FAERS Safety Report 21642237 (Version 2)
Quarter: 2022Q4

REPORT INFORMATION
  Report Type: Spontaneous
  Country: US (occurrence: US)
  Receive Date: 20221125
  Receipt Date: 20221220
  Transmission Date: 20230112
  Serious: No
  Sender: FDA-Public Use
  Company Number: US-ALK-ABELLO A/S-2022AA003764

PATIENT

DRUGS (1)
  1. GLYCERIN [Suspect]
     Active Substance: GLYCERIN
     Indication: Skin test

REACTIONS (1)
  - False positive investigation result [Unknown]
